FAERS Safety Report 25999807 (Version 4)
Quarter: 2025Q4

REPORT INFORMATION
  Report Type: Spontaneous
  Country: US (occurrence: US)
  Receive Date: 20251105
  Receipt Date: 20251229
  Transmission Date: 20260118
  Serious: Yes (Hospitalization, Other)
  Sender: ARGENX BVBA
  Company Number: US-ARGENX-2025-ARGX-US015079

PATIENT

DRUGS (20)
  1. VYVGART [Suspect]
     Active Substance: EFGARTIGIMOD ALFA-FCAB
     Indication: Myasthenia gravis
     Dosage: 880 MG, 10 MG/KG, 1/WEEK FOR 4 WEEKS
     Route: 042
     Dates: start: 202309
  2. CALCIUM\VITAMIN D [Concomitant]
     Active Substance: CALCIUM\VITAMIN D
     Indication: Supplementation therapy
     Dosage: 600-20 MG- MCG. TAKE 1 TABLET BY MOUTH 1 (ONE) TIME EACH DAY
     Route: 048
  3. COZAAR [Concomitant]
     Active Substance: LOSARTAN POTASSIUM
     Indication: Product used for unknown indication
     Dosage: 50 MG, DAILY, TAKE 1 TABLET BY MOUTH 1 TIME EACH DAY.
     Route: 048
  4. ELIQUIS [Concomitant]
     Active Substance: APIXABAN
     Indication: Atrial fibrillation
     Dosage: 5 MG, BID, TAKE 1 TABLET (5 MG TOTAL) BY MOUTH IN THE MORNING AND BEFORE BEDTIME
     Route: 048
  5. ESTRACE [Concomitant]
     Active Substance: ESTRADIOL
     Indication: Product used for unknown indication
     Dosage: UNK, 0.1 MG/GM, INSERT 1 G INTO THE VAGINA 2 (TWO) TIRNES A WEEK, ON MONDAYS AND THURSDAYS
     Route: 067
  6. GEMTESA [Concomitant]
     Active Substance: VIBEGRON
     Indication: Product used for unknown indication
     Dosage: 75 MG, DAILY, TAKE 1 TABLET (75 MG TOTAL) BY MOUTH 1 (ONE) TIME EACH DAY.
     Route: 048
  7. GLUCOTROL XL [Concomitant]
     Active Substance: GLIPIZIDE
     Indication: Product used for unknown indication
     Dosage: 5 MG, DAILY, TAKE 1 TABLET BY MOUTH DAILY IN ADDITION TO JARDIANCE AS DIRECTED. DO NOT CRUSH, CHEW O
     Route: 048
  8. IMURAN [Concomitant]
     Active Substance: AZATHIOPRINE
     Indication: Product used for unknown indication
     Dosage: 50 MG, DAILY, TAKE 1 TABLET BY MOUTH 1 TIME EACH DAY
     Route: 048
  9. JARDIANCE [Concomitant]
     Active Substance: EMPAGLIFLOZIN
     Indication: Product used for unknown indication
     Dosage: UNK, AS DIRECTED
     Route: 065
  10. LASIX [Concomitant]
     Active Substance: FUROSEMIDE
     Indication: Product used for unknown indication
     Dosage: 40 MG, TAKE 1 TABLET BY MOUTH 1 (ONE) TIME EACH DAY TAKE WITH POTASSIUM DAILY
     Route: 048
  11. LEVOXYL [Concomitant]
     Active Substance: LEVOTHYROXINE SODIUM
     Indication: Product used for unknown indication
     Dosage: 50 UG, DAILY, TAKE 1 TABLET BY MOUTH ONCE DAILY IN THE MORNING
     Route: 048
  12. MEVACOR [Concomitant]
     Active Substance: LOVASTATIN
     Indication: Hyperlipidaemia
     Dosage: 20 MG, DAILY, TAKE 1 TABLET BY MOUTH ONLY WITH EVENING MEAL
     Route: 048
  13. MIRAPEX [Concomitant]
     Active Substance: PRAMIPEXOLE DIHYDROCHLORIDE
     Indication: Product used for unknown indication
     Dosage: 0.5 MG, DAILY, TAKE 1 TABLET BY MOUTH DAILY AT BEDTIME
     Route: 048
  14. NORVASC [Concomitant]
     Active Substance: AMLODIPINE BESYLATE
     Indication: Blood pressure measurement
     Dosage: 10 MG, DAILY, TAKE 1 TABLET BY MOUTH DAILY
     Route: 048
  15. POTASSIUM CHLORIDE [Concomitant]
     Active Substance: POTASSIUM CHLORIDE
     Indication: Product used for unknown indication
     Dosage: 20 MEQ, DAILY, TAKE 1 TABLET (20 MEQ TOTAL) BY MOUTH (ONE) TIME EACH DAY
     Route: 048
  16. PREPARATION H HYDROCORTISONE [Concomitant]
     Active Substance: HYDROCORTISONE
     Indication: Haemorrhoids
     Dosage: UNK. 0.25-14- 74.9% APPLY TOPICALLY EVERY 6 (SIX) HOURS IF NEEDED
     Route: 061
  17. PRILOSEC [Concomitant]
     Active Substance: OMEPRAZOLE MAGNESIUM
     Indication: Product used for unknown indication
     Dosage: 20 MG, DAILY, TAKE 1 CAPSULE BY MOUTH 1 (ONE) TIME EACH DAY BEFORE BREAKFAST
     Route: 048
  18. SYNTHROID [Concomitant]
     Active Substance: LEVOTHYROXINE SODIUM
     Indication: Product used for unknown indication
     Dosage: 50 UG, TAKE 1 TABLET BY MOUTH ONCE DAILY IN THE MORNING
     Route: 048
  19. TYLENOL [Concomitant]
     Active Substance: ACETAMINOPHEN
     Indication: Pain
     Dosage: 500 MG, TAKE 2 TABLETS BY MOUTH EVERY 6 (SIX) HOURS IF   NEEDED FOR MILD PAIN OR MODERATE PAIN. TAKE
     Route: 048
  20. VITAMIN D3 [Concomitant]
     Active Substance: CHOLECALCIFEROL
     Indication: Vitamin D deficiency
     Dosage: 50 UG, DAILY, TAKE 2.000 UNITS BY MOUTH (ONE) TIME EACH DAY
     Route: 048

REACTIONS (3)
  - Acute kidney injury [Recovered/Resolved]
  - Urinary tract infection [Recovered/Resolved]
  - Malaise [Recovered/Resolved]

NARRATIVE: CASE EVENT DATE: 20251027
